FAERS Safety Report 12858853 (Version 1)
Quarter: 2016Q4

REPORT INFORMATION
  Report Type: Spontaneous
  Country: GB (occurrence: GB)
  Receive Date: 20161018
  Receipt Date: 20161018
  Transmission Date: 20170207
  Serious: Yes (Hospitalization, Other)
  Sender: FDA-Public Use
  Company Number: GB-MYLANLABS-2016M1043883

PATIENT

DRUGS (13)
  1. BISOPROLOL [Suspect]
     Active Substance: BISOPROLOL
     Indication: HYPERTENSION
     Dosage: 1.25 MG, BID
     Route: 048
     Dates: start: 20160928, end: 20160929
  2. GTN [Concomitant]
     Active Substance: NITROGLYCERIN
     Dosage: 1-2 PUFFS.
     Route: 060
  3. ISOSORBIDE MONONITRATE. [Concomitant]
     Active Substance: ISOSORBIDE MONONITRATE
     Dosage: 60 MG, QD
  4. PREGABALIN. [Concomitant]
     Active Substance: PREGABALIN
     Dosage: 75 MG, BID
  5. ATORVASTATIN [Concomitant]
     Active Substance: ATORVASTATIN
     Dosage: 80 MG, QD (AT NIGHT.)
  6. METFORMIN [Concomitant]
     Active Substance: METFORMIN HYDROCHLORIDE
     Dosage: 500 MG, BID
  7. BIMATOPROST. [Concomitant]
     Active Substance: BIMATOPROST
     Dosage: 2 GTT, QD (AT NIGHT)
     Route: 047
  8. CLOPIDOGREL [Concomitant]
     Active Substance: CLOPIDOGREL BISULFATE
     Dosage: 75 MG, QD
  9. COSOPT [Concomitant]
     Active Substance: DORZOLAMIDE HYDROCHLORIDE\TIMOLOL MALEATE
     Indication: GLAUCOMA
     Dosage: 2 GTT, BID
     Route: 047
  10. EZETIMIBE. [Concomitant]
     Active Substance: EZETIMIBE
     Dosage: 10 MG, QD
  11. BRIMONIDINE [Concomitant]
     Active Substance: BRIMONIDINE TARTRATE
     Dosage: 2 GTT, BID
     Route: 047
  12. AMLODIPINE [Concomitant]
     Active Substance: AMLODIPINE BESYLATE
     Dosage: 10 MG, QD
  13. LISINOPRIL. [Concomitant]
     Active Substance: LISINOPRIL
     Dosage: 20 MG, QD

REACTIONS (2)
  - Bradycardia [Not Recovered/Not Resolved]
  - Atrioventricular block complete [Not Recovered/Not Resolved]

NARRATIVE: CASE EVENT DATE: 20160928
